FAERS Safety Report 22330610 (Version 1)
Quarter: 2023Q2

REPORT INFORMATION
  Report Type: Spontaneous
  Country: US (occurrence: US)
  Receive Date: 20230517
  Receipt Date: 20230517
  Transmission Date: 20230721
  Serious: Yes (Other)
  Sender: FDA-Public Use
  Company Number: US-CIPLA LTD.-2023US02555

PATIENT

DRUGS (3)
  1. FENOFIBRATE [Suspect]
     Active Substance: FENOFIBRATE
     Indication: Cholestasis of pregnancy
     Dosage: 160 MG DAILY AT 32W6D
     Route: 065
  2. URSODIOL [Suspect]
     Active Substance: URSODIOL
     Indication: Cholestasis of pregnancy
     Dosage: 300 MILLIGRAMS, TID AT 19W4D
     Route: 065
  3. URSODIOL [Suspect]
     Active Substance: URSODIOL
     Dosage: 500 MILLIGRAM, TID
     Route: 065

REACTIONS (4)
  - Preterm premature rupture of membranes [Unknown]
  - Breech presentation [Unknown]
  - Exposure during pregnancy [Unknown]
  - Premature delivery [Unknown]
